FAERS Safety Report 5530887-0 (Version None)
Quarter: 2007Q4

REPORT INFORMATION
  Report Type: 
  Country: None (occurrence: None)
  Receive Date: 20071130
  Receipt Date: 20071116
  Transmission Date: 20080405
  Serious: Yes (Life-Threatening, Other)
  Sender: FDA-Public Use
  Company Number: GB-RANBAXY-2007RR-11567

PATIENT

DRUGS (14)
  1. ALLOPURINOL TABLETS BP 300MG [Suspect]
     Dosage: 300 MG, UNK
     Route: 048
  2. ACICLOVIR 200 MG TABLETS [Suspect]
  3. CASPOFUNGIN [Suspect]
     Dosage: 70 MG, UNK
     Route: 042
  4. CHLORPHENAMINE TABLETS BP 4MG [Suspect]
     Dosage: 10 MG, QID
     Route: 042
  5. CYCLOSPORINE [Suspect]
  6. ETOPOSIDE [Suspect]
     Dosage: UNK
     Route: 042
     Dates: start: 20070915, end: 20070915
  7. KETALAR [Suspect]
     Indication: PAIN
     Dosage: 6 ML, UNK
     Route: 042
     Dates: start: 20070921, end: 20070928
  8. MORPHINE [Suspect]
     Dosage: UNK
     Route: 042
  9. NORETHISTERONE [Suspect]
     Dosage: 5 MG, TID
     Route: 048
  10. OMEPRAZOLE [Suspect]
  11. ONDANSETRON SOLUTION FOR INJECTION [Suspect]
     Dosage: 8 MG, TID
     Route: 042
  12. PARACETAMOL [Suspect]
     Dosage: UNK
     Route: 042
  13. TAZOCIN [Suspect]
     Dosage: 4.5 MG, TID
     Route: 042
  14. VORICONAZOLE [Suspect]
     Dosage: 200 MG, BID
     Route: 048

REACTIONS (9)
  - ALANINE AMINOTRANSFERASE INCREASED [None]
  - BLOOD ALKALINE PHOSPHATASE INCREASED [None]
  - BLOOD BILIRUBIN INCREASED [None]
  - BONE MARROW TRANSPLANT [None]
  - DILATATION INTRAHEPATIC DUCT ACQUIRED [None]
  - HEPATOTOXICITY [None]
  - LIVER FUNCTION TEST ABNORMAL [None]
  - PAIN [None]
  - VENOOCCLUSIVE DISEASE [None]
